FAERS Safety Report 9727153 (Version 1)
Quarter: 2013Q4

REPORT INFORMATION
  Report Type: Spontaneous
  Country: CA (occurrence: CA)
  Receive Date: 20131203
  Receipt Date: 20131203
  Transmission Date: 20140711
  Serious: Yes (Hospitalization, Other)
  Sender: FDA-Public Use
  Company Number: CA-009507513-1311CAN013024

PATIENT
  Age: 63 Year
  Sex: Female

DRUGS (4)
  1. VICTRELIS [Suspect]
     Dosage: 800 MG, TID
     Route: 048
     Dates: start: 20130523
  2. RIBAVIRIN [Suspect]
     Indication: HEPATITIS C
     Dosage: 200-1000 (VARIOUS DOSES)
     Route: 048
     Dates: start: 20130425
  3. PEGASYS [Suspect]
     Indication: HEPATITIS C
     Dosage: 180 MICROGRAM, 1/1WEEKS
     Route: 058
     Dates: start: 20130425
  4. EPREX [Concomitant]
     Indication: PRODUCT USED FOR UNKNOWN INDICATION
     Dosage: 40000 IU, 1/1WEEKS
     Route: 065
     Dates: start: 20130714

REACTIONS (3)
  - Intestinal obstruction [Unknown]
  - Sepsis [Unknown]
  - Transfusion [Unknown]
